FAERS Safety Report 16464273 (Version 2)
Quarter: 2020Q2

REPORT INFORMATION
  Report Type: Spontaneous
  Country: US (occurrence: US)
  Receive Date: 20190621
  Receipt Date: 20200616
  Transmission Date: 20200713
  Serious: No
  Sender: FDA-Public Use
  Company Number: US-ASTELLAS-2019US008428

PATIENT
  Sex: Female

DRUGS (11)
  1. HYDROCHLOROTHIAZIDE. [Concomitant]
     Active Substance: HYDROCHLOROTHIAZIDE
     Indication: BLOOD PRESSURE ABNORMAL
     Dosage: 25 MG, ONCE DAILY (BEEN TAKING FOR 6 OR 8 YEARS)
     Route: 048
  2. VITAMIN B6 [Concomitant]
     Active Substance: PYRIDOXINE HYDROCHLORIDE
     Indication: PROPHYLAXIS
     Dosage: 1000 MG, ONCE DAILY (FOR MENTAL AND PHYSICIAL, BEGAN TAKING 6 TO 8 YEARS AGO)
     Route: 048
  3. CALCIUM WITH VITAMIN D             /00944201/ [Concomitant]
     Active Substance: CALCIUM CARBONATE\CHOLECALCIFEROL
     Indication: BONE DISORDER
     Dosage: 600 MG, TWICE DAILY (BEGAN TAKING 6 TO 8 YEARS AGO)
     Route: 065
  4. PRAVASTATIN. [Concomitant]
     Active Substance: PRAVASTATIN
     Indication: BLOOD CHOLESTEROL ABNORMAL
     Dosage: 80 MG, ONCE DAILY (TWO 40 MG TABLETS IN THE EVENING, TAKING FOR 6 OR 8 YEARS)
     Route: 048
  5. OMEGA 3 6 9                        /01334101/ [Concomitant]
     Active Substance: FISH OIL
     Indication: PROPHYLAXIS
     Dosage: 3000 MG, TWICE DAILY (FOUR 1500 MG CAPSULES EACH DAY, 2 IN THE MORNING AND 2 AT NIGHT)
     Route: 048
  6. ZINC. [Concomitant]
     Active Substance: ZINC
     Indication: FIBRINOUS BRONCHITIS
     Route: 048
  7. VITAMIN B12 [Concomitant]
     Active Substance: CYANOCOBALAMIN
     Indication: PROPHYLAXIS
     Route: 060
  8. LYSINE [Concomitant]
     Active Substance: LYSINE
     Indication: RESPIRATORY DISORDER
     Dosage: 500 MG, ONCE DAILY (HAS TAKEN ALMOST ALL OF HER LIFE)
     Route: 048
  9. VESICARE [Suspect]
     Active Substance: SOLIFENACIN SUCCINATE
     Indication: INCONTINENCE
     Route: 048
  10. VESICARE [Suspect]
     Active Substance: SOLIFENACIN SUCCINATE
     Route: 048
  11. VITAMIN D3 [Concomitant]
     Active Substance: CHOLECALCIFEROL
     Indication: PROPHYLAXIS
     Route: 048

REACTIONS (1)
  - Drug ineffective [Unknown]
